FAERS Safety Report 15584329 (Version 1)
Quarter: 2018Q4

REPORT INFORMATION
  Report Type: Spontaneous
  Country: US (occurrence: US)
  Receive Date: 20181031
  Receipt Date: 20181031
  Transmission Date: 20190205
  Serious: No
  Sender: FDA-Public Use
  Company Number: None

PATIENT
  Age: 53 Year
  Sex: Female

DRUGS (12)
  1. AMOXICILLIN. [Concomitant]
     Active Substance: AMOXICILLIN
  2. CHLORHEX GLU SOL [Concomitant]
  3. TALTZ [Suspect]
     Active Substance: IXEKIZUMAB
     Indication: ASTHMA
     Route: 058
     Dates: start: 20180430
  4. CALCIFEROL [ERGOCALCIFEROL] [Suspect]
     Active Substance: ERGOCALCIFEROL
  5. OMEPRAZOLE. [Concomitant]
     Active Substance: OMEPRAZOLE
  6. FLUTICASONE. [Concomitant]
     Active Substance: FLUTICASONE
  7. IBUPROFEN. [Concomitant]
     Active Substance: IBUPROFEN
  8. MONTELUKAST [Concomitant]
     Active Substance: MONTELUKAST SODIUM
  9. PATADAY [Concomitant]
     Active Substance: OLOPATADINE HYDROCHLORIDE
  10. TALTZ [Suspect]
     Active Substance: IXEKIZUMAB
     Indication: RHINITIS ALLERGIC
     Route: 058
     Dates: start: 20180430
  11. TALTZ [Suspect]
     Active Substance: IXEKIZUMAB
     Indication: PRODUCT USED FOR UNKNOWN INDICATION
     Route: 058
     Dates: start: 20180430
  12. TALTZ [Suspect]
     Active Substance: IXEKIZUMAB
     Indication: CONJUNCTIVITIS
     Route: 058
     Dates: start: 20180430

REACTIONS (2)
  - Infection [None]
  - Immune system disorder [None]

NARRATIVE: CASE EVENT DATE: 20181029
